FAERS Safety Report 8964313 (Version 2)
Quarter: 2013Q1

REPORT INFORMATION
  Report Type: Spontaneous
  Country: US (occurrence: US)
  Receive Date: 20121214
  Receipt Date: 20130103
  Transmission Date: 20140127
  Serious: Yes (Other)
  Sender: FDA-Public Use
  Company Number: US-PFIZER INC-2012315988

PATIENT
  Age: 38 Year
  Sex: Female
  Weight: 72.56 kg

DRUGS (9)
  1. LYRICA [Suspect]
     Indication: FIBROMYALGIA
     Dosage: 150 MG, 2X/DAY
     Route: 048
     Dates: start: 201205, end: 201210
  2. LYRICA [Suspect]
     Dosage: 100 MG, 2X/DAY
     Route: 048
     Dates: start: 201211
  3. CYMBALTA [Concomitant]
     Indication: DEPRESSION
     Dosage: 120 MG, DAILY
  4. CLONAZEPAM [Concomitant]
     Indication: ANXIETY
     Dosage: 1 MG, 3X/DAY
  5. OXYCODONE/ACETAMINOPHEN [Concomitant]
     Indication: FIBROMYALGIA
     Dosage: 10/325 MG TABLET AS NEEDED AT 10/325 MG EVERY FOUR HOURS
  6. OXYCODONE/ACETAMINOPHEN [Concomitant]
     Indication: BACK PAIN
  7. OXYCODONE/ACETAMINOPHEN [Concomitant]
     Indication: NECK PAIN
  8. OXYCODONE [Concomitant]
     Dosage: 10/325 MG EVERY FOUR HOURS
  9. WARFARIN [Concomitant]
     Dosage: UNK

REACTIONS (2)
  - Local swelling [Recovered/Resolved]
  - Joint swelling [Recovered/Resolved]
